FAERS Safety Report 23037094 (Version 1)
Quarter: 2023Q4

REPORT INFORMATION
  Report Type: Spontaneous
  Country: US (occurrence: US)
  Receive Date: 20231006
  Receipt Date: 20231006
  Transmission Date: 20240110
  Serious: Yes (Other)
  Sender: FDA-Public Use
  Company Number: US-Accord-371298

PATIENT
  Age: 46 Year
  Sex: Female

DRUGS (3)
  1. DOCETAXEL [Suspect]
     Active Substance: DOCETAXEL
     Indication: Breast cancer
     Dosage: INJECTION CONCENTRATE, NUMBER OF CYCLE: 5, C1-C3: 140MG, C4-C5: 110MG
     Dates: start: 20160310, end: 20160608
  2. CARBOPLATIN [Suspect]
     Active Substance: CARBOPLATIN
     Indication: Breast cancer
     Dosage: NUMBER OF CYCLE: 5, C1-C3: 140MG?C4-C5: 110MG
     Dates: start: 20160310, end: 20160608
  3. PERJETA [Suspect]
     Active Substance: PERTUZUMAB
     Indication: Breast cancer
     Dosage: NUMBER OF CYCLE: 5, C1-C3: 140MG?C4-C5: 110MG
     Dates: start: 20160310, end: 20160608

REACTIONS (5)
  - Lacrimation increased [Not Recovered/Not Resolved]
  - Blindness [Not Recovered/Not Resolved]
  - Cataract [Not Recovered/Not Resolved]
  - Dry eye [Unknown]
  - Migraine [Not Recovered/Not Resolved]

NARRATIVE: CASE EVENT DATE: 20200101
